FAERS Safety Report 7422685-8 (Version None)
Quarter: 2011Q2

REPORT INFORMATION
  Report Type: 
  Country: None (occurrence: None)
  Receive Date: 20110419
  Receipt Date: 20110407
  Transmission Date: 20111010
  Serious: Yes (Hospitalization)
  Sender: FDA-Public Use
  Company Number: US-ELI_LILLY_AND_COMPANY-US201104002926

PATIENT
  Age: 47 Year
  Sex: Male

DRUGS (4)
  1. ZYPREXA [Suspect]
     Dosage: 15 MG, UNK
  2. ZYPREXA [Suspect]
     Indication: SCHIZOPHRENIA
     Dosage: 20 MG, UNK
  3. FLUPHENAZINE [Concomitant]
  4. ZYPREXA [Suspect]
     Dosage: 10 MG, UNK

REACTIONS (3)
  - DRUG INEFFECTIVE [None]
  - TARDIVE DYSKINESIA [None]
  - INCOHERENT [None]
